FAERS Safety Report 4326169-5 (Version None)
Quarter: 2004Q1

REPORT INFORMATION
  Report Type: 
  Country: None (occurrence: None)
  Receive Date: 20040324
  Receipt Date: 20040310
  Transmission Date: 20041129
  Serious: Yes (Life-Threatening, Hospitalization)
  Sender: FDA-Public Use
  Company Number: 2004IC000033

PATIENT
  Age: 77 Year
  Sex: Male

DRUGS (3)
  1. FLUOROURACIL [Suspect]
     Indication: RECTAL CANCER
     Dosage: 750 MG; INTRAVENOUS
     Route: 042
     Dates: start: 20031016, end: 20031112
  2. LEUCOVORIN CALCIUM [Suspect]
     Indication: RECTAL CANCER
     Dosage: 400 MG; INTRAVENOUS
     Route: 042
     Dates: start: 20031016, end: 20031112
  3. CEFMETAZON [Concomitant]

REACTIONS (12)
  - DEHYDRATION [None]
  - DIARRHOEA [None]
  - EATING DISORDER [None]
  - ENTERITIS [None]
  - FLATULENCE [None]
  - HYPOTENSION [None]
  - ILEUS PARALYTIC [None]
  - MALAISE [None]
  - RENAL FAILURE ACUTE [None]
  - STAPHYLOCOCCAL INFECTION [None]
  - STOMATITIS [None]
  - VOMITING [None]
